FAERS Safety Report 19381063 (Version 1)
Quarter: 2021Q2

REPORT INFORMATION
  Report Type: Spontaneous
  Country: US (occurrence: US)
  Receive Date: 20210604
  Receipt Date: 20210604
  Transmission Date: 20210717
  Serious: Yes (Other)
  Sender: FDA-Public Use
  Company Number: None

PATIENT
  Age: 26 Year
  Sex: Female
  Weight: 78.92 kg

DRUGS (2)
  1. INFLECTRA [Suspect]
     Active Substance: INFLIXIMAB-DYYB
     Indication: COLITIS ULCERATIVE
     Dosage: ?          OTHER FREQUENCY:Q 8 WEEKS;?
     Route: 042
     Dates: start: 20210525, end: 20210525
  2. INFLECTRA [Concomitant]
     Active Substance: INFLIXIMAB-DYYB
     Dates: start: 20210525, end: 20210525

REACTIONS (4)
  - Dyspnoea [None]
  - Erythema [None]
  - Anaphylactic reaction [None]
  - Anxiety [None]

NARRATIVE: CASE EVENT DATE: 20210525
